FAERS Safety Report 16272643 (Version 1)
Quarter: 2019Q2

REPORT INFORMATION
  Report Type: Report from Study
  Country: IN (occurrence: IN)
  Receive Date: 20190506
  Receipt Date: 20190506
  Transmission Date: 20190711
  Serious: Yes (Hospitalization, Other)
  Sender: FDA-Public Use
  Company Number: IN-ROCHE-2225257

PATIENT
  Age: 70 Year
  Sex: Male

DRUGS (1)
  1. TECENTRIQ [Suspect]
     Active Substance: ATEZOLIZUMAB
     Indication: TRANSITIONAL CELL CARCINOMA
     Route: 042
     Dates: start: 20180607

REACTIONS (7)
  - Malaise [Unknown]
  - Blood sodium decreased [Unknown]
  - Vomiting [Unknown]
  - Rheumatoid arthritis [Unknown]
  - Blood potassium decreased [Unknown]
  - Gait inability [Unknown]
  - Bedridden [Unknown]
